FAERS Safety Report 6894872-9 (Version None)
Quarter: 2010Q3

REPORT INFORMATION
  Report Type: 
  Country: None (occurrence: None)
  Receive Date: 20100802
  Receipt Date: 20100720
  Transmission Date: 20110219
  Serious: Yes (Hospitalization)
  Sender: FDA-Public Use
  Company Number: US-ROCHE-706101

PATIENT
  Sex: Female
  Weight: 84 kg

DRUGS (8)
  1. AVASTIN [Suspect]
     Indication: OVARIAN CANCER
     Dosage: DOSE LEVEL: 15 MG/KG.
     Route: 042
     Dates: start: 20100121
  2. AVASTIN [Suspect]
     Dosage: DOSE LEVEL: 10 MG/KG.
     Route: 042
     Dates: end: 20100513
  3. AVASTIN [Suspect]
     Route: 042
     Dates: end: 20100522
  4. DOXIL [Suspect]
     Indication: OVARIAN CANCER
     Dosage: DOSE LEVEL: 30 MG/M2
     Route: 042
     Dates: start: 20091228
  5. DOXIL [Suspect]
     Dosage: DOSE LEVEL: 25 MG/M2. DOSE WAS REDUCED.
     Route: 042
     Dates: end: 20100531
  6. ATENOLOL [Concomitant]
  7. LISINOPRIL [Concomitant]
  8. TEGRETOL [Concomitant]

REACTIONS (8)
  - ABDOMINAL PAIN [None]
  - ANAEMIA [None]
  - HYPERTENSION [None]
  - NAUSEA [None]
  - PANCYTOPENIA [None]
  - PLEURAL EFFUSION [None]
  - RENAL FAILURE [None]
  - VOMITING [None]
